FAERS Safety Report 5608030-9 (Version None)
Quarter: 2008Q1

REPORT INFORMATION
  Report Type: 
  Country: None (occurrence: None)
  Receive Date: 20080128
  Receipt Date: 20080128
  Transmission Date: 20080703
  Serious: Yes (Other)
  Sender: FDA-Public Use
  Company Number: None

PATIENT
  Age: 20 Year
  Sex: Female
  Weight: 81.6475 kg

DRUGS (2)
  1. BACTRIM [Suspect]
     Indication: CELLULITIS
     Dosage: 1 PILL 3 TIMES A DAY PO
     Route: 048
     Dates: start: 20070825, end: 20070904
  2. BACTRIM [Suspect]
     Indication: STAPHYLOCOCCAL INFECTION
     Dosage: 1 PILL 3 TIMES A DAY PO
     Route: 048
     Dates: start: 20070825, end: 20070904

REACTIONS (12)
  - ARTHRALGIA [None]
  - BACK PAIN [None]
  - COUGH [None]
  - FATIGUE [None]
  - FEELING OF BODY TEMPERATURE CHANGE [None]
  - HEADACHE [None]
  - INSOMNIA [None]
  - MALAISE [None]
  - MYALGIA [None]
  - NEURALGIA [None]
  - NEURITIS [None]
  - PYREXIA [None]
